FAERS Safety Report 8275942-X (Version None)
Quarter: 2012Q2

REPORT INFORMATION
  Report Type: 
  Country: None (occurrence: None)
  Receive Date: 20120412
  Receipt Date: 20120406
  Transmission Date: 20120825
  Serious: No
  Sender: FDA-Public Use
  Company Number: US-PFIZER INC-2012087444

PATIENT

DRUGS (1)
  1. OXYCODONE HCL [Suspect]

REACTIONS (1)
  - DRUG HYPERSENSITIVITY [None]
